APPROVED DRUG PRODUCT: LANSOPRAZOLE, AMOXICILLIN AND CLARITHROMYCIN (COPACKAGED)
Active Ingredient: AMOXICILLIN; CLARITHROMYCIN; LANSOPRAZOLE
Strength: 500MG;500MG;30MG
Dosage Form/Route: CAPSULE, TABLET, CAPSULE, DELAYED REL PELLETS;ORAL
Application: A206006 | Product #001 | TE Code: AB
Applicant: RISING PHARMA HOLDINGS INC
Approved: Oct 7, 2016 | RLD: No | RS: Yes | Type: RX